FAERS Safety Report 8428720-2 (Version None)
Quarter: 2012Q2

REPORT INFORMATION
  Report Type: 
  Country: None (occurrence: None)
  Receive Date: 20120606
  Receipt Date: 20120526
  Transmission Date: 20120825
  Serious: Yes (Hospitalization)
  Sender: FDA-Public Use
  Company Number: AUR-APL-2012-02511

PATIENT
  Age: 48 Year
  Sex: Male
  Weight: 86.08 kg

DRUGS (2)
  1. PAROXETINE HCL [Suspect]
     Indication: PRODUCT USED FOR UNKNOWN INDICATION
  2. ZIPRASIDONE HCL [Suspect]
     Indication: POST-TRAUMATIC STRESS DISORDER
     Dates: end: 20120502

REACTIONS (4)
  - DEPRESSION [None]
  - SUICIDAL IDEATION [None]
  - ALCOHOL ABUSE [None]
  - HOMICIDAL IDEATION [None]
